FAERS Safety Report 16709930 (Version 7)
Quarter: 2020Q2

REPORT INFORMATION
  Report Type: Spontaneous
  Country: US (occurrence: US)
  Receive Date: 20190816
  Receipt Date: 20200609
  Transmission Date: 20200713
  Serious: Yes (Hospitalization, Other)
  Sender: FDA-Public Use
  Company Number: US-PFIZER INC-2019349001

PATIENT
  Age: 56 Year
  Sex: Female
  Weight: 68.03 kg

DRUGS (2)
  1. LYRICA [Suspect]
     Active Substance: PREGABALIN
     Indication: FIBROMYALGIA
     Dosage: 200 MG, DAILY
  2. LYRICA [Suspect]
     Active Substance: PREGABALIN
     Indication: RHEUMATOID ARTHRITIS
     Dosage: 75 MG, 2X/DAY
     Route: 048
     Dates: start: 201711

REACTIONS (7)
  - Pain [Recovered/Resolved]
  - Pancreatitis [Unknown]
  - Malaise [Unknown]
  - Constipation [Unknown]
  - Arthritis [Unknown]
  - Memory impairment [Unknown]
  - Vision blurred [Unknown]
